FAERS Safety Report 4831487-8 (Version None)
Quarter: 2005Q4

REPORT INFORMATION
  Report Type: 
  Country: None (occurrence: None)
  Receive Date: 20051116
  Receipt Date: 20051103
  Transmission Date: 20060501
  Serious: Yes (Death, Hospitalization)
  Sender: FDA-Public Use
  Company Number: 2005-04352

PATIENT
  Age: 63 Year
  Sex: Male

DRUGS (3)
  1. FIORICET [Suspect]
     Dosage: ORAL
     Route: 048
  2. AMBIEN [Suspect]
     Dosage: ORAL
     Route: 048
  3. CLONAZEPAM [Suspect]
     Dosage: ORAL
     Route: 048

REACTIONS (10)
  - ANOXIC ENCEPHALOPATHY [None]
  - DEPRESSED LEVEL OF CONSCIOUSNESS [None]
  - HYPERTENSION [None]
  - IATROGENIC INJURY [None]
  - INCORRECT ROUTE OF DRUG ADMINISTRATION [None]
  - INTENTIONAL DRUG MISUSE [None]
  - MULTIPLE DRUG OVERDOSE [None]
  - OVERDOSE [None]
  - PNEUMONITIS [None]
  - TACHYCARDIA [None]
